FAERS Safety Report 9383088 (Version 6)
Quarter: 2013Q3

REPORT INFORMATION
  Report Type: Report from Study
  Country: DE (occurrence: DE)
  Receive Date: 20130704
  Receipt Date: 20130923
  Transmission Date: 20140515
  Serious: Yes (Hospitalization)
  Sender: FDA-Public Use
  Company Number: DE-ROCHE-1242248

PATIENT
  Age: 50 Year
  Sex: Female
  Weight: 75.7 kg

DRUGS (35)
  1. MYCOPHENOLATE MOFETIL [Suspect]
     Indication: RENAL TRANSPLANT
     Dosage: DATE OF LAST DOSE PRIOR TO SAE: 25/JUN/2009, 15/JUL/2009, 18/AUG/2009 AND 25/APR/2010
     Route: 048
     Dates: start: 20090518
  2. MYCOPHENOLATE MOFETIL [Suspect]
     Route: 042
     Dates: start: 20100426
  3. MYCOPHENOLATE MOFETIL [Suspect]
     Route: 048
     Dates: start: 20100427
  4. TACROLIMUS [Suspect]
     Indication: RENAL TRANSPLANT
     Dosage: DATE OF LAST DOSE PRIOR TO SAE: 25/JUN/2009
     Route: 048
     Dates: start: 20090518
  5. TACROLIMUS [Suspect]
     Dosage: DATE OF LAST DOSE PRIOR TO SAE: 15/JUL/2009
     Route: 048
     Dates: start: 20090707
  6. TACROLIMUS [Suspect]
     Route: 048
     Dates: start: 20090721
  7. TACROLIMUS [Suspect]
     Route: 048
     Dates: start: 20090723
  8. TACROLIMUS [Suspect]
     Dosage: LAST DOSE PRIOR TO SAE: 18/AUG/2009
     Route: 048
     Dates: start: 20090817
  9. TACROLIMUS [Suspect]
     Dosage: LAST DOSE PRIOR TO SAE: 25/AUG/2010
     Route: 048
     Dates: start: 20090822
  10. TACROLIMUS [Suspect]
     Route: 042
     Dates: start: 20100426
  11. TACROLIMUS [Suspect]
     Route: 048
     Dates: start: 20100428
  12. TACROLIMUS [Suspect]
     Dosage: 10 MG/D
     Route: 065
  13. BASILIXIMAB [Suspect]
     Indication: RENAL TRANSPLANT
     Dosage: DATE OF LAST DOSE PRIOR TO SAE: 21/MAY/2009
     Route: 048
     Dates: start: 20090518
  14. PREDNISOLONE [Suspect]
     Indication: RENAL TRANSPLANT
     Dosage: DATE OF LAST DOSE PRIOR TO SAE: 25/JUN/2009 AND 15/JUL/2009
     Route: 048
     Dates: start: 20090518
  15. PREDNISOLONE [Suspect]
     Route: 048
     Dates: start: 20090706
  16. PREDNISOLONE [Suspect]
     Route: 048
     Dates: start: 20090718
  17. PREDNISOLONE [Suspect]
     Route: 048
     Dates: start: 20090721
  18. PREDNISOLONE [Suspect]
     Route: 048
     Dates: start: 20090727
  19. PREDNISOLONE [Suspect]
     Route: 048
     Dates: start: 20090817
  20. PREDNISOLONE [Suspect]
     Dosage: LAST DOSE PRIOR TO SAE: 25/APR/2010
     Route: 048
     Dates: start: 20090828
  21. PREDNISOLONE [Suspect]
     Route: 048
     Dates: start: 20090618
  22. L-THYROXIN [Concomitant]
     Route: 065
  23. L-THYROXIN [Concomitant]
     Route: 065
  24. PANTOZOL (GERMANY) [Concomitant]
     Dosage: DAILY
     Route: 065
     Dates: start: 20090518
  25. IDEOS [Concomitant]
     Route: 065
  26. ACTRAPID [Concomitant]
     Dosage: 18 IE
     Route: 065
  27. LEVEMIR [Concomitant]
     Dosage: 10 IE
     Route: 065
  28. EFEROX [Concomitant]
     Route: 065
  29. TOREM [Concomitant]
     Route: 065
  30. FERROSANOL DUODENAL [Concomitant]
     Dosage: 1/D
     Route: 065
  31. COTRIM FORTE [Concomitant]
     Dosage: 1 TAB 3 TIMES PER WEEK
     Route: 065
     Dates: end: 200910
  32. COTRIM FORTE [Concomitant]
     Dosage: 800/160 DAILY
     Route: 065
     Dates: end: 20090518
  33. FRAXIPARINE [Concomitant]
     Route: 065
  34. AMPHO MORONAL [Concomitant]
     Dosage: DAILY
     Route: 065
  35. ACTRAPID [Concomitant]

REACTIONS (9)
  - Urosepsis [Recovered/Resolved with Sequelae]
  - Gastroenteritis [Recovered/Resolved with Sequelae]
  - Haematuria [Recovered/Resolved]
  - Lymphocele [Recovered/Resolved]
  - Bacteriuria [Recovered/Resolved]
  - Blood creatinine increased [Recovered/Resolved with Sequelae]
  - Urosepsis [Recovered/Resolved with Sequelae]
  - Gastroenteritis [Recovered/Resolved]
  - Transplant failure [Recovered/Resolved]
